FAERS Safety Report 12238392 (Version 1)
Quarter: 2016Q2

REPORT INFORMATION
  Report Type: Spontaneous
  Country: US (occurrence: None)
  Receive Date: 20160404
  Receipt Date: 20160404
  Transmission Date: 20160815
  Serious: No
  Sender: FDA-Public Use
  Company Number: None

PATIENT
  Sex: Male

DRUGS (2)
  1. LIDOCAINE 2% WITH EPINEPHRINE [Concomitant]
  2. KYBELLA [Suspect]
     Active Substance: DEOXYCHOLIC ACID
     Route: 058

REACTIONS (2)
  - Alopecia [None]
  - Hypoaesthesia [None]
